FAERS Safety Report 11108147 (Version 1)
Quarter: 2015Q2

REPORT INFORMATION
  Report Type: Spontaneous
  Country: US (occurrence: US)
  Receive Date: 20150512
  Receipt Date: 20150512
  Transmission Date: 20150821
  Serious: No
  Sender: FDA-Public Use
  Company Number: US-BAYER-2015-189184

PATIENT
  Age: 66 Year

DRUGS (1)
  1. CLARITIN REDITABS [Suspect]
     Active Substance: LORATADINE
     Indication: NASAL CONGESTION
     Dosage: 1 TABLET ON ATONGUE,3-4 TIMES ONE A DAY
     Route: 048
     Dates: start: 20150403, end: 20150405

REACTIONS (1)
  - Drug ineffective [None]

NARRATIVE: CASE EVENT DATE: 20150403
